FAERS Safety Report 19360152 (Version 1)
Quarter: 2021Q2

REPORT INFORMATION
  Report Type: Report from Study
  Country: None (occurrence: US)
  Receive Date: 20210602
  Receipt Date: 20210602
  Transmission Date: 20210717
  Serious: No
  Sender: FDA-Public Use
  Company Number: US-MDD US OPERATIONS-MDD202008-001625

PATIENT
  Age: 90 Year
  Sex: Female
  Weight: 65.77 kg

DRUGS (14)
  1. APOKYN [Suspect]
     Active Substance: APOMORPHINE HYDROCHLORIDE
     Indication: PARKINSON^S DISEASE
     Route: 058
     Dates: start: 20200728, end: 20200914
  2. GABAPENTIN. [Concomitant]
     Active Substance: GABAPENTIN
  3. APOKYN [Suspect]
     Active Substance: APOMORPHINE HYDROCHLORIDE
     Route: 058
     Dates: end: 2020
  4. MELATONIN [Concomitant]
     Active Substance: MELATONIN
  5. BENADRYL [Concomitant]
     Active Substance: DIPHENHYDRAMINE HYDROCHLORIDE
  6. METOPROLOL. [Concomitant]
     Active Substance: METOPROLOL
  7. PAROXETINE. [Concomitant]
     Active Substance: PAROXETINE
  8. LOSARTAN POTASSIUM. [Concomitant]
     Active Substance: LOSARTAN POTASSIUM
  9. AMIODARONE [Concomitant]
     Active Substance: AMIODARONE
  10. LORAZEPAM. [Concomitant]
     Active Substance: LORAZEPAM
  11. CARBIDOPA LEVODOPA [Concomitant]
     Active Substance: CARBIDOPA\LEVODOPA
     Dosage: 25?100 MG
  12. MIRTAZAPINE. [Concomitant]
     Active Substance: MIRTAZAPINE
  13. APOKYN [Suspect]
     Active Substance: APOMORPHINE HYDROCHLORIDE
     Dosage: UPTO 0.2ML
     Route: 058
     Dates: end: 2020
  14. CLOPIDOGREL [Concomitant]
     Active Substance: CLOPIDOGREL BISULFATE

REACTIONS (12)
  - Dizziness [Recovered/Resolved]
  - Insomnia [Unknown]
  - Dry mouth [Unknown]
  - Yawning [Unknown]
  - Sensation of foreign body [Unknown]
  - Abdominal pain upper [Unknown]
  - Fatigue [Unknown]
  - Nausea [Unknown]
  - Fall [Unknown]
  - Wheezing [Unknown]
  - Tremor [Recovered/Resolved]
  - Retching [Recovered/Resolved]

NARRATIVE: CASE EVENT DATE: 2020
